FAERS Safety Report 7883656-0 (Version None)
Quarter: 2011Q4

REPORT INFORMATION
  Report Type: 
  Country: None (occurrence: None)
  Receive Date: 20111102
  Receipt Date: 20111028
  Transmission Date: 20120403
  Serious: Yes (Other)
  Sender: FDA-Public Use
  Company Number: CA-PFIZER INC-2011265617

PATIENT
  Age: 32 Year
  Sex: Female

DRUGS (13)
  1. LYRICA [Suspect]
     Dosage: 200 MG, 2X/DAY
     Route: 048
     Dates: start: 20100501, end: 20110101
  2. CYMBALTA [Suspect]
     Dosage: 30 MG, 2X/DAY
     Route: 048
     Dates: start: 20100701, end: 20100101
  3. LYRICA [Suspect]
     Indication: BACK PAIN
     Dosage: 100 MG, 2X/DAY
     Route: 048
     Dates: start: 20090101, end: 20100301
  4. LYRICA [Suspect]
     Dosage: 300 MG, 3X/DAY
     Route: 048
     Dates: start: 20110501
  5. ELAVIL [Suspect]
     Dosage: 10 MG, 2X/DAY
     Route: 048
     Dates: start: 20100101, end: 20100101
  6. MORPHINE [Concomitant]
     Indication: BACK PAIN
     Dosage: 10 MG, AS NEEDED
     Route: 048
     Dates: start: 20110101
  7. OXYCONTIN [Concomitant]
     Dosage: 20 MG, 2X/DAY
     Route: 048
     Dates: start: 20090201
  8. OXYCODONE [Concomitant]
     Indication: BACK PAIN
     Dosage: 5 MG, EVERY 4 HRS
     Route: 048
     Dates: start: 20090101
  9. LYRICA [Suspect]
     Dosage: 300 MG, 2X/DAY
     Route: 048
     Dates: start: 20110201, end: 20110501
  10. LYRICA [Suspect]
     Dosage: 125 MG, 2X/DAY
     Route: 048
     Dates: start: 20100301, end: 20100401
  11. LYRICA [Suspect]
     Dosage: 125 MG AM AND150 MG PM
     Route: 048
     Dates: start: 20100401, end: 20100501
  12. LYRICA [Suspect]
     Dosage: 200 MG AM AND 300 MG PM
     Route: 048
     Dates: start: 20110101, end: 20110201
  13. OXYCONTIN [Concomitant]
     Indication: BACK PAIN
     Dosage: 10 MG, 2X/DAY
     Route: 048
     Dates: start: 20090101, end: 20090201

REACTIONS (8)
  - SOMNOLENCE [None]
  - UTERINE MASS [None]
  - FATIGUE [None]
  - FIBROMYALGIA [None]
  - DRUG INEFFECTIVE [None]
  - IRRITABILITY [None]
  - OEDEMA PERIPHERAL [None]
  - DRY MOUTH [None]
